FAERS Safety Report 14253498 (Version 2)
Quarter: 2018Q1

REPORT INFORMATION
  Report Type: Report from Study
  Country: US (occurrence: US)
  Receive Date: 20171205
  Receipt Date: 20180124
  Transmission Date: 20180508
  Serious: Yes (Other)
  Sender: FDA-Public Use
  Company Number: US-GILEAD-2017-0273802

PATIENT
  Age: 66 Year
  Sex: Female

DRUGS (18)
  1. UPTRAVI [Suspect]
     Active Substance: SELEXIPAG
     Dosage: 1200 UG, BID
     Route: 065
  2. LINZESS [Concomitant]
     Active Substance: LINACLOTIDE
  3. IRON [Concomitant]
     Active Substance: IRON
  4. GLIPIZIDE. [Concomitant]
     Active Substance: GLIPIZIDE
  5. JANUVIA [Concomitant]
     Active Substance: SITAGLIPTIN PHOSPHATE
  6. METFORMIN HCL [Concomitant]
     Active Substance: METFORMIN HYDROCHLORIDE
  7. AMBRISENTAN [Suspect]
     Active Substance: AMBRISENTAN
     Indication: PULMONARY ARTERIAL HYPERTENSION
     Dosage: 10 MG, QD
     Route: 065
     Dates: start: 20160803
  8. VOLTAREN [Concomitant]
     Active Substance: DICLOFENAC SODIUM
  9. DULOXETINE HCL [Concomitant]
     Active Substance: DULOXETINE HYDROCHLORIDE
  10. ALLOPURINOL. [Concomitant]
     Active Substance: ALLOPURINOL
  11. TRAMADOL HCL [Concomitant]
     Active Substance: TRAMADOL HYDROCHLORIDE
  12. TYLENOL [Concomitant]
     Active Substance: ACETAMINOPHEN
  13. MULTI VITAMIN [Concomitant]
     Active Substance: VITAMINS
  14. UPTRAVI [Suspect]
     Active Substance: SELEXIPAG
     Indication: PULMONARY ARTERIAL HYPERTENSION
     Dosage: 800 UG, BID
     Route: 065
     Dates: start: 20170523
  15. UPTRAVI [Suspect]
     Active Substance: SELEXIPAG
     Dosage: 1600 UG, UNK
     Route: 065
  16. ADCIRCA [Concomitant]
     Active Substance: TADALAFIL
     Dosage: 20 MG, BID
  17. FUROSEMIDE. [Concomitant]
     Active Substance: FUROSEMIDE
  18. VALSARTAN. [Concomitant]
     Active Substance: VALSARTAN

REACTIONS (6)
  - Pain [Not Recovered/Not Resolved]
  - Fatigue [Not Recovered/Not Resolved]
  - Pain in jaw [Unknown]
  - Headache [Not Recovered/Not Resolved]
  - Trismus [Unknown]
  - Cognitive disorder [Not Recovered/Not Resolved]

NARRATIVE: CASE EVENT DATE: 201705
